FAERS Safety Report 12085555 (Version 5)
Quarter: 2016Q2

REPORT INFORMATION
  Report Type: Report from Study
  Country: BE (occurrence: BE)
  Receive Date: 20160217
  Receipt Date: 20160505
  Transmission Date: 20160815
  Serious: Yes (Hospitalization)
  Sender: FDA-Public Use
  Company Number: BE-ABBVIE-15P-013-1351113-00

PATIENT
  Age: 70 Year
  Sex: Female

DRUGS (18)
  1. EMCONCOR [Concomitant]
     Active Substance: BISOPROLOL FUMARATE
     Indication: PRODUCT USED FOR UNKNOWN INDICATION
  2. DUODOPA [Suspect]
     Active Substance: CARBIDOPA\LEVODOPA
     Dosage: AM: 1 ML, CD: 3.8 ML/H DURING 16H, ED: 2.5 ML, ND: 2.5 ML/H DURING 8H
     Route: 050
     Dates: start: 20150309, end: 20150318
  3. DUODOPA [Suspect]
     Active Substance: CARBIDOPA\LEVODOPA
     Dosage: AM=1ML ;CD=4ML/HR DURING 16HRS; ED=2.5ML; ND=2.5ML/HR DURING 8HRS
     Route: 050
     Dates: start: 20160204
  4. DUODOPA [Suspect]
     Active Substance: CARBIDOPA\LEVODOPA
     Route: 050
     Dates: end: 20160429
  5. DUODOPA [Suspect]
     Active Substance: CARBIDOPA\LEVODOPA
     Dosage: AM: 1 ML, CD: 3.9 ML/H DURING 16H, ED: 2.5 ML, ND: 2.3 ML/H DURING 8H
     Route: 050
     Dates: start: 20150227, end: 20150309
  6. DUODOPA [Suspect]
     Active Substance: CARBIDOPA\LEVODOPA
     Indication: PARKINSON^S DISEASE
     Dosage: AM = 5.5 ML, CD = 3.9 ML/H DURING 16H, ED = 1.5 ML
     Route: 050
     Dates: start: 20150209, end: 20150213
  7. DUODOPA [Suspect]
     Active Substance: CARBIDOPA\LEVODOPA
     Dosage: AM = 1 ML, CD = 4.1 ML/H DURING 16H, ED = 2.5 ML, ND = 2.3 ML/H DURING 8H
     Route: 050
     Dates: start: 20150223, end: 20150227
  8. DUODOPA [Suspect]
     Active Substance: CARBIDOPA\LEVODOPA
     Dosage: AM=1ML; CD=3.9ML/HR DURING 16HRS; ED=2.5ML; ND=2.5ML/HR DURING 8 HRS
     Route: 050
     Dates: start: 20150611, end: 20150716
  9. PROLOPA [Concomitant]
     Active Substance: BENSERAZIDE\LEVODOPA
     Indication: PARKINSON^S DISEASE
     Dosage: 1 TO 2 UNITS
  10. DUODOPA [Suspect]
     Active Substance: CARBIDOPA\LEVODOPA
     Dosage: AM= 1ML; CD=4ML/HR DURING 16HRS; ED=2.5ML; ND=2.5ML/HR DURING
     Route: 050
     Dates: start: 20160211, end: 201603
  11. RIVOTRIL [Concomitant]
     Active Substance: CLONAZEPAM
     Indication: PRODUCT USED FOR UNKNOWN INDICATION
  12. MOVICOL [Concomitant]
     Active Substance: POLYETHYLENE GLYCOL 3350\POTASSIUM CHLORIDE\SODIUM BICARBONATE\SODIUM CHLORIDE
     Indication: PRODUCT USED FOR UNKNOWN INDICATION
  13. REQUIP [Concomitant]
     Active Substance: ROPINIROLE HYDROCHLORIDE
     Indication: PARKINSON^S DISEASE
     Dates: start: 20150220
  14. CYMBALTA [Concomitant]
     Active Substance: DULOXETINE HYDROCHLORIDE
     Indication: PRODUCT USED FOR UNKNOWN INDICATION
  15. DUODOPA [Suspect]
     Active Substance: CARBIDOPA\LEVODOPA
     Dosage: AM=1ML; CD=4ML/HR DURING 16HRS; ED=2.5ML; ND=2.5ML/HR DURING 8HRS
     Route: 050
     Dates: start: 20150716, end: 20160202
  16. PROLOPA [Concomitant]
     Active Substance: BENSERAZIDE\LEVODOPA
     Indication: PARKINSON^S DISEASE
     Dosage: FORM STRENGTH: 200MG/50MG; 8 IN 1 DAY
  17. DUODOPA [Suspect]
     Active Substance: CARBIDOPA\LEVODOPA
     Dosage: DOSE CONTINUOUSLY MONITORED AND ADAPTED
     Route: 050
     Dates: start: 20150213, end: 20150223
  18. DUODOPA [Suspect]
     Active Substance: CARBIDOPA\LEVODOPA
     Dosage: AM = 1 ML, CD = 4 ML/H DURING 16H, ED = 2.5 ML
     Route: 050
     Dates: start: 20150318, end: 20150611

REACTIONS (28)
  - Confusional state [Unknown]
  - Stress [Unknown]
  - Drug titration error [Unknown]
  - Agitation [Unknown]
  - Anal spasm [Unknown]
  - Fear [Unknown]
  - Muscle tightness [Unknown]
  - Panic reaction [Unknown]
  - Unintentional medical device removal [Recovered/Resolved]
  - Aggression [Unknown]
  - Gastrointestinal pain [Unknown]
  - Device occlusion [Recovered/Resolved]
  - Device damage [Recovered/Resolved]
  - Medical device change [Recovered/Resolved]
  - Device damage [Unknown]
  - Cognitive disorder [Unknown]
  - Urinary tract disorder [Unknown]
  - Muscle contractions involuntary [Unknown]
  - Dystonia [Unknown]
  - On and off phenomenon [Unknown]
  - Incorrect route of drug administration [Unknown]
  - Pain [Unknown]
  - Dysuria [Unknown]
  - Mobility decreased [Unknown]
  - Muscle spasms [Unknown]
  - Dyskinesia [Unknown]
  - Device dislocation [Recovered/Resolved]
  - Cognitive disorder [Not Recovered/Not Resolved]

NARRATIVE: CASE EVENT DATE: 20160429
